FAERS Safety Report 14269665 (Version 1)
Quarter: 2017Q4

REPORT INFORMATION
  Report Type: Spontaneous
  Country: JP (occurrence: JP)
  Receive Date: 20171211
  Receipt Date: 20171211
  Transmission Date: 20180321
  Serious: Yes (Death, Other)
  Sender: FDA-Public Use
  Company Number: JP-OTSUKA-2015_014618

PATIENT
  Age: 38 Year
  Sex: Female

DRUGS (10)
  1. TOPINA [Concomitant]
     Active Substance: TOPIRAMATE
     Indication: PRODUCT USED FOR UNKNOWN INDICATION
     Dosage: 250 MG, QD
     Route: 048
     Dates: start: 20151112, end: 20151114
  2. DEPAKENE [Concomitant]
     Active Substance: VALPROIC ACID
     Indication: PRODUCT USED FOR UNKNOWN INDICATION
     Dosage: 200 MG, UNK
     Route: 065
     Dates: start: 20151112, end: 20151114
  3. ABILIFY [Suspect]
     Active Substance: ARIPIPRAZOLE
     Dosage: 30 ML, QD
     Dates: start: 20150608, end: 20151114
  4. DEPAKENE [Concomitant]
     Active Substance: VALPROIC ACID
     Indication: PRODUCT USED FOR UNKNOWN INDICATION
     Dosage: 400 MG, QD
     Route: 048
     Dates: start: 20151112, end: 20151114
  5. CLONAZEPAM. [Concomitant]
     Active Substance: CLONAZEPAM
     Indication: PRODUCT USED FOR UNKNOWN INDICATION
     Dosage: 0.5 MG, UNK
     Route: 065
     Dates: start: 20151015, end: 20151114
  6. ABILIFY [Suspect]
     Active Substance: ARIPIPRAZOLE
     Dosage: 24 ML, QD
     Route: 048
     Dates: start: 20150601, end: 20150607
  7. LANDSEN [Concomitant]
     Active Substance: CLONAZEPAM
     Indication: PRODUCT USED FOR UNKNOWN INDICATION
     Dosage: 1 MG, QD
     Route: 048
     Dates: start: 20151015, end: 20151114
  8. BENZALIN                           /00036201/ [Concomitant]
     Active Substance: NITRAZEPAM
     Indication: PRODUCT USED FOR UNKNOWN INDICATION
     Dosage: 5 MG, QD
     Route: 048
     Dates: start: 20151105, end: 20151114
  9. BELSOMRA [Concomitant]
     Active Substance: SUVOREXANT
     Indication: PRODUCT USED FOR UNKNOWN INDICATION
     Route: 065
  10. ABILIFY [Suspect]
     Active Substance: ARIPIPRAZOLE
     Indication: SCHIZOPHRENIA
     Dosage: 12 ML, QD
     Route: 048
     Dates: start: 20150525, end: 20150531

REACTIONS (1)
  - Sudden death [Fatal]

NARRATIVE: CASE EVENT DATE: 20151115
